FAERS Safety Report 8802415 (Version 2)
Quarter: 2013Q1

REPORT INFORMATION
  Report Type: Spontaneous
  Country: US (occurrence: US)
  Receive Date: 20120921
  Receipt Date: 20130225
  Transmission Date: 20140127
  Serious: Yes (Death, Hospitalization, Congenital Anomaly, Other)
  Sender: FDA-Public Use
  Company Number: US-PFIZER INC-2012233734

PATIENT
  Age: 3 Day
  Sex: Female

DRUGS (6)
  1. ZOLOFT [Suspect]
     Indication: DEPRESSION
     Dosage: UNK
     Route: 064
     Dates: start: 2009
  2. PRENATAL VITAMINS [Concomitant]
     Dosage: UNK
     Route: 064
  3. TYLENOL [Concomitant]
     Dosage: UNK
     Route: 064
  4. MIDOL [Concomitant]
     Dosage: UNK
     Route: 064
  5. MOTRIN [Concomitant]
     Dosage: UNK
     Route: 064
  6. TUMS [Concomitant]
     Dosage: UNK
     Route: 064

REACTIONS (4)
  - Maternal exposure timing unspecified [Fatal]
  - Heart disease congenital [Fatal]
  - Hypoplastic left heart syndrome [Unknown]
  - Lymphadenopathy [Unknown]
